FAERS Safety Report 13318084 (Version 1)
Quarter: 2017Q1

REPORT INFORMATION
  Report Type: Spontaneous
  Country: US (occurrence: US)
  Receive Date: 20170309
  Receipt Date: 20170309
  Transmission Date: 20170428
  Serious: Yes (Other)
  Sender: FDA-Public Use
  Company Number: None

PATIENT
  Age: 77 Year
  Sex: Female
  Weight: 51.3 kg

DRUGS (18)
  1. ASPIRIN 81 [Concomitant]
     Active Substance: ASPIRIN
  2. COMBIGEN [Concomitant]
  3. LATANPROST [Concomitant]
     Active Substance: LATANOPROST
  4. PROTONIX [Concomitant]
     Active Substance: PANTOPRAZOLE SODIUM
  5. CELECOXIB. [Concomitant]
     Active Substance: CELECOXIB
  6. CLONAZEPAM. [Concomitant]
     Active Substance: CLONAZEPAM
  7. IRON [Concomitant]
     Active Substance: IRON
  8. COQ10 [Concomitant]
     Active Substance: UBIDECARENONE
  9. FISH OIL [Concomitant]
     Active Substance: FISH OIL
  10. VITAMIN C [Concomitant]
     Active Substance: ASCORBIC ACID
  11. SALONPAS PATCHES [Concomitant]
  12. LEVOFLOXACIN. [Suspect]
     Active Substance: LEVOFLOXACIN
     Indication: URINARY TRACT INFECTION
     Dosage: ?          QUANTITY:1 TABLET(S);?
     Route: 048
     Dates: start: 20170308, end: 20170308
  13. DORZOLAMIDE [Concomitant]
     Active Substance: DORZOLAMIDE
  14. MULTIVITAMIN [Concomitant]
     Active Substance: VITAMINS
  15. TYLENOL [Concomitant]
     Active Substance: ACETAMINOPHEN
  16. DOCUSATE [Concomitant]
     Active Substance: DOCUSATE
  17. WARFARIN [Concomitant]
     Active Substance: WARFARIN
  18. VITAMIN D [Concomitant]
     Active Substance: CHOLECALCIFEROL

REACTIONS (3)
  - Asthenia [None]
  - Restlessness [None]
  - Nausea [None]

NARRATIVE: CASE EVENT DATE: 20170309
